FAERS Safety Report 4351335-2 (Version None)
Quarter: 2004Q2

REPORT INFORMATION
  Report Type: 
  Country: None (occurrence: None)
  Receive Date: 20040503
  Receipt Date: 20040423
  Transmission Date: 20050107
  Serious: Yes (Hospitalization)
  Sender: FDA-Public Use
  Company Number: FR-JNJFOC-20040305062

PATIENT
  Age: 11 Year
  Sex: Male
  Weight: 37 kg

DRUGS (7)
  1. RISPERDAL [Suspect]
     Route: 049
  2. RISPERDAL [Suspect]
     Route: 049
  3. RISPERDAL [Suspect]
     Route: 049
  4. RISPERDAL [Suspect]
     Route: 049
  5. RISPERDAL [Suspect]
     Route: 049
  6. TIAPRIDAL [Concomitant]
  7. TIAPRIDAL [Concomitant]

REACTIONS (6)
  - ABDOMINAL DISCOMFORT [None]
  - BLOOD ALKALINE PHOSPHATASE INCREASED [None]
  - CONSTIPATION [None]
  - HEADACHE [None]
  - NAUSEA [None]
  - VOMITING [None]
